FAERS Safety Report 4808407-5 (Version None)
Quarter: 2005Q4

REPORT INFORMATION
  Report Type: 
  Country: None (occurrence: None)
  Receive Date: 20051025
  Receipt Date: 20051013
  Transmission Date: 20060501
  Serious: Yes (Other)
  Sender: FDA-Public Use
  Company Number: US-JNJFOC-20051003251

PATIENT
  Sex: Male

DRUGS (4)
  1. REMICADE [Suspect]
     Indication: CROHN'S DISEASE
     Route: 042
  2. 6-MP [Concomitant]
  3. CHOLESTEROL MEDICATION [Concomitant]
  4. B-12 [Concomitant]

REACTIONS (2)
  - PLATELET COUNT DECREASED [None]
  - SKIN CANCER [None]
